FAERS Safety Report 8406191-X (Version None)
Quarter: 2012Q2

REPORT INFORMATION
  Report Type: 
  Country: None (occurrence: None)
  Receive Date: 20120604
  Receipt Date: 20120529
  Transmission Date: 20120825
  Serious: Yes (Hospitalization, Other)
  Sender: FDA-Public Use
  Company Number: US-BAYER-201036494NA

PATIENT
  Age: 42 Year
  Sex: Female
  Weight: 163.27 kg

DRUGS (11)
  1. GLIPIZIDE [Concomitant]
     Indication: DIABETES MELLITUS
     Dosage: 5 MG, UNK
     Dates: start: 20070101
  2. ORTHO-NOVUM 1/35 [Concomitant]
  3. GEMFIBROZIL [Concomitant]
     Indication: BLOOD CHOLESTEROL INCREASED
     Dosage: 0.20 MG, UNK
     Dates: start: 20070101
  4. DEPAKENE [Concomitant]
     Dosage: 750 MG, UNK
     Dates: start: 20070201
  5. CITALOPRAM HYDROBROMIDE [Concomitant]
     Indication: BIPOLAR DISORDER
     Dosage: 0.20 MG, UNK
     Dates: start: 20070101
  6. YAZ [Suspect]
     Indication: PRODUCT USED FOR UNKNOWN INDICATION
     Dates: start: 20061201, end: 20070207
  7. CHLORPROMAZINE [Concomitant]
     Indication: BIPOLAR DISORDER
     Dosage: UNK
     Dates: start: 20070101
  8. CELEXA [Concomitant]
     Indication: ANXIETY
     Dosage: 20 MG, UNK
     Dates: start: 20070101
  9. LITHIUM CARBONATE [Concomitant]
     Indication: BIPOLAR DISORDER
     Dosage: 300 MG, UNK
     Dates: start: 20070101
  10. YASMIN [Suspect]
     Indication: PRODUCT USED FOR UNKNOWN INDICATION
     Dates: start: 20061201, end: 20070207
  11. BENZTROPINE MESYLATE [Concomitant]
     Indication: ADVERSE DRUG REACTION
     Dosage: 1 MG, UNK
     Dates: start: 20070101

REACTIONS (2)
  - DIABETES MELLITUS [None]
  - PULMONARY EMBOLISM [None]
